FAERS Safety Report 5311697-6 (Version None)
Quarter: 2007Q2

REPORT INFORMATION
  Report Type: 
  Country: None (occurrence: None)
  Receive Date: 20070426
  Receipt Date: 20070426
  Transmission Date: 20071010
  Serious: No
  Sender: FDA-Public Use
  Company Number: None

PATIENT
  Age: 13 Year
  Sex: Male
  Weight: 61.2356 kg

DRUGS (2)
  1. ABILIFY [Suspect]
     Indication: ATTENTION DEFICIT/HYPERACTIVITY DISORDER
     Dosage: 2 MG DAILY BUCCAL
     Route: 002
     Dates: start: 20070401, end: 20070423
  2. ABILIFY [Suspect]
     Indication: IMPULSE-CONTROL DISORDER
     Dosage: 2 MG DAILY BUCCAL
     Route: 002
     Dates: start: 20070401, end: 20070423

REACTIONS (2)
  - TENDERNESS [None]
  - TORTICOLLIS [None]
